FAERS Safety Report 14341526 (Version 1)
Quarter: 2018Q1

REPORT INFORMATION
  Report Type: Spontaneous
  Country: US (occurrence: US)
  Receive Date: 20180102
  Receipt Date: 20180102
  Transmission Date: 20180509
  Serious: No
  Sender: FDA-Public Use
  Company Number: US-TEVA-2018-US-842886

PATIENT
  Sex: Female

DRUGS (10)
  1. MILK OF MAGNESIA [Concomitant]
     Active Substance: MAGNESIUM HYDROXIDE
  2. AUSTEDO [Suspect]
     Active Substance: DEUTETRABENAZINE
     Indication: HUNTINGTON^S DISEASE
     Dosage: 48 MILLIGRAM DAILY; TWO 12 MG TABS TWICE DAILY
     Route: 048
     Dates: start: 20170927
  3. TRANSDERMAL PAIN BASE [Concomitant]
  4. ACETAMINOPHEN. [Concomitant]
     Active Substance: ACETAMINOPHEN
  5. TYLENOL [Concomitant]
     Active Substance: ACETAMINOPHEN
  6. ASPIRIN LOW DOSE [Concomitant]
     Active Substance: ASPIRIN
  7. ONDANSETRON HCL [Concomitant]
     Active Substance: ONDANSETRON HYDROCHLORIDE
  8. REMERON [Concomitant]
     Active Substance: MIRTAZAPINE
  9. BENZTROPINE MESYLATE. [Concomitant]
     Active Substance: BENZTROPINE MESYLATE
  10. OYSTER SHELL CALCIUM [Concomitant]
     Active Substance: CALCIUM

REACTIONS (1)
  - Refusal of treatment by patient [Unknown]
